FAERS Safety Report 5972542-9 (Version None)
Quarter: 2008Q4

REPORT INFORMATION
  Report Type: 
  Country: None (occurrence: None)
  Receive Date: 20081201
  Receipt Date: 20081121
  Transmission Date: 20090506
  Serious: Yes (Hospitalization)
  Sender: FDA-Public Use
  Company Number: B0547220A

PATIENT
  Age: 14 Year
  Sex: Male

DRUGS (2)
  1. ZYBAN [Suspect]
     Dosage: 1500MG PER DAY
     Route: 048
  2. ACETAMINOPHEN [Concomitant]

REACTIONS (8)
  - ACUTE PSYCHOSIS [None]
  - CONFUSIONAL STATE [None]
  - HALLUCINATION [None]
  - HALLUCINATION, VISUAL [None]
  - HEART RATE INCREASED [None]
  - OVERDOSE [None]
  - RESTLESSNESS [None]
  - VOMITING [None]
